FAERS Safety Report 14009743 (Version 4)
Quarter: 2018Q1

REPORT INFORMATION
  Report Type: Report from Study
  Country: ES (occurrence: ES)
  Receive Date: 20170925
  Receipt Date: 20180222
  Transmission Date: 20180508
  Serious: Yes (Death, Hospitalization, Other)
  Sender: FDA-Public Use
  Company Number: ES-BRISTOL-MYERS SQUIBB COMPANY-BMS-2017-083634

PATIENT
  Age: 34 Year
  Sex: Male
  Weight: 85 kg

DRUGS (6)
  1. NIVOLUMAB [Suspect]
     Active Substance: NIVOLUMAB
     Indication: LEYDIG CELL TUMOUR OF THE TESTIS
     Dosage: 255 MG, Q2WK
     Route: 042
     Dates: start: 20170906, end: 20170906
  2. IPILIMUMAB [Suspect]
     Active Substance: IPILIMUMAB
     Indication: LEYDIG CELL TUMOUR OF THE TESTIS
     Dosage: 85 MG, Q6WK
     Route: 042
     Dates: start: 20170906, end: 20170906
  3. SEGURIL [Concomitant]
     Active Substance: FUROSEMIDE
     Indication: OEDEMA
     Dosage: 80 MG, UNK
     Route: 048
     Dates: start: 20170821, end: 20170921
  4. ACETYLCYSTEINE. [Concomitant]
     Active Substance: ACETYLCYSTEINE
     Indication: PRODUCT USED FOR UNKNOWN INDICATION
     Dosage: 600 MG, UNK
     Route: 048
     Dates: start: 20170818, end: 20170921
  5. OMEPRAZOLE. [Concomitant]
     Active Substance: OMEPRAZOLE
     Indication: PRODUCT USED FOR UNKNOWN INDICATION
     Dosage: 20 MG, UNK
     Route: 048
     Dates: start: 20161214, end: 20170921
  6. CODEINA [Concomitant]
     Active Substance: CODEINE
     Indication: COUGH
     Dosage: 80 MG, UNK
     Route: 048
     Dates: start: 20161214, end: 20170921

REACTIONS (1)
  - Malignant neoplasm progression [Fatal]

NARRATIVE: CASE EVENT DATE: 20170916
